FAERS Safety Report 5509469-2 (Version None)
Quarter: 2007Q4

REPORT INFORMATION
  Report Type: 
  Country: None (occurrence: None)
  Receive Date: 20071107
  Receipt Date: 20071026
  Transmission Date: 20080405
  Serious: Yes (Hospitalization, Other)
  Sender: FDA-Public Use
  Company Number: BE-PFIZER INC-2007083270

PATIENT
  Sex: Male
  Weight: 66 kg

DRUGS (5)
  1. CHAMPIX [Suspect]
     Indication: SMOKING CESSATION THERAPY
     Route: 048
     Dates: start: 20070827, end: 20070829
  2. DISPRIL [Concomitant]
     Route: 048
  3. AMLOR [Concomitant]
     Route: 048
  4. SELECTOL [Concomitant]
     Route: 048
  5. SPIRIVA [Concomitant]

REACTIONS (4)
  - ANAEMIA [None]
  - HAEMATEMESIS [None]
  - MELAENA [None]
  - RENAL FAILURE [None]
